FAERS Safety Report 9469833 (Version 2)
Quarter: 2013Q3

REPORT INFORMATION
  Report Type: Spontaneous
  Country: US (occurrence: US)
  Receive Date: 20130822
  Receipt Date: 20130906
  Transmission Date: 20140515
  Serious: Yes (Death, Other)
  Sender: FDA-Public Use
  Company Number: US-AMGEN-USASP2013058498

PATIENT
  Age: 91 Year
  Sex: Female
  Weight: 49.89 kg

DRUGS (8)
  1. PROLIA [Suspect]
     Indication: OSTEOPOROSIS
     Dosage: 60 MG, Q6MO
     Route: 058
     Dates: start: 20120229
  2. PROLIA [Suspect]
     Route: 058
  3. PROLIA [Suspect]
     Route: 058
  4. OMEPRAZOLE [Concomitant]
     Dosage: 20 MG, UNK
     Route: 048
  5. METOPROLOL [Concomitant]
     Dosage: 25 MG, UNK
     Route: 048
  6. LOSARTAN [Concomitant]
     Dosage: 50 MG, UNK
     Route: 048
  7. FUROSEMIDE [Concomitant]
     Dosage: 20 MG, UNK
     Route: 048
  8. BROVANA [Concomitant]
     Route: 045

REACTIONS (3)
  - Chronic obstructive pulmonary disease [Fatal]
  - Pulmonary hypertension [Unknown]
  - Cardiac failure congestive [Unknown]
